FAERS Safety Report 4308018-4 (Version None)
Quarter: 2004Q1

REPORT INFORMATION
  Report Type: 
  Country: None (occurrence: None)
  Receive Date: 20040301
  Receipt Date: 20030317
  Transmission Date: 20041129
  Serious: No
  Sender: FDA-Public Use
  Company Number: US-BRISTOL-MYERS SQUIBB COMPANY-12214383

PATIENT
  Age: 50 Year
  Sex: Male

DRUGS (9)
  1. GLUCOPHAGE [Suspect]
     Indication: DIABETES MELLITUS
     Route: 048
  2. ASPIRIN [Concomitant]
  3. ZESTRIL [Concomitant]
  4. ZOCOR [Concomitant]
  5. CLOTRIMAZOLE [Concomitant]
  6. HYDROCORTISONE CREAM [Concomitant]
  7. MULTI-VITAMINS [Concomitant]
  8. FLU VACCINE [Concomitant]
  9. TETANUS VACCINE [Concomitant]

REACTIONS (2)
  - BLOOD GLUCOSE INCREASED [None]
  - NASOPHARYNGITIS [None]
